FAERS Safety Report 7523356-X (Version None)
Quarter: 2011Q2

REPORT INFORMATION
  Report Type: 
  Country: None (occurrence: None)
  Receive Date: 20110603
  Receipt Date: 20110526
  Transmission Date: 20111010
  Serious: Yes (Hospitalization)
  Sender: FDA-Public Use
  Company Number: A0929984A

PATIENT
  Age: 80 Year
  Sex: Male

DRUGS (1)
  1. ADVAIR DISKUS 100/50 [Suspect]
     Route: 065
     Dates: start: 20100830

REACTIONS (1)
  - CEREBROVASCULAR ACCIDENT [None]
